FAERS Safety Report 8842791 (Version 1)
Quarter: 2012Q4

REPORT INFORMATION
  Report Type: 
  Country: NL (occurrence: NL)
  Receive Date: 20121016
  Receipt Date: 20121016
  Transmission Date: 20130627
  Serious: Yes (Hospitalization)
  Sender: FDA-Public Use
  Company Number: NL-ELI_LILLY_AND_COMPANY-EWC990603664

PATIENT
  Age: 56 Year
  Sex: Male

DRUGS (4)
  1. ZYPREXA [Suspect]
     Indication: DEPRESSION
     Dosage: 5 mg, daily (1/D)
     Route: 048
  2. PARNATE [Concomitant]
     Indication: DEPRESSION
     Dosage: 10 mg, qd
     Route: 048
     Dates: end: 19990328
  3. ATENOLOL [Concomitant]
     Dosage: 50 mg, daily (1/D)
     Route: 048
  4. LORMETAZEPAM [Concomitant]
     Dosage: 2 mg, daily (1/D)
     Route: 048
     Dates: end: 19990328

REACTIONS (1)
  - Jaundice cholestatic [Not Recovered/Not Resolved]
